FAERS Safety Report 9323770 (Version 1)
Quarter: 2013Q2

REPORT INFORMATION
  Report Type: Report from Study
  Country: MX (occurrence: MX)
  Receive Date: 20130603
  Receipt Date: 20130603
  Transmission Date: 20140414
  Serious: Yes (Hospitalization, Other)
  Sender: FDA-Public Use
  Company Number: MX-SANOFI-AVENTIS-2013SA053714

PATIENT
  Age: 70 Year
  Sex: Female
  Weight: 72 kg

DRUGS (3)
  1. AMARYL [Suspect]
     Indication: TYPE 2 DIABETES MELLITUS
     Route: 048
     Dates: start: 2011, end: 201302
  2. OLMESARTAN [Concomitant]
     Indication: HYPERTENSION
     Route: 048
     Dates: start: 1983
  3. LOPRESOR [Concomitant]
     Indication: HYPERTENSION
     Route: 048
     Dates: start: 1983

REACTIONS (2)
  - Glaucoma [Not Recovered/Not Resolved]
  - Hyperglycaemia [Recovered/Resolved]
